FAERS Safety Report 11810576 (Version 5)
Quarter: 2016Q1

REPORT INFORMATION
  Report Type: Spontaneous
  Country: JP (occurrence: JP)
  Receive Date: 20151208
  Receipt Date: 20160203
  Transmission Date: 20160525
  Serious: Yes (Hospitalization, Other)
  Sender: FDA-Public Use
  Company Number: JP-FERRINGPH-2015FE04493

PATIENT

DRUGS (6)
  1. MAGMITT [Concomitant]
     Active Substance: MAGNESIUM OXIDE
     Dosage: 330 MG, UNK
     Dates: start: 20140306
  2. GONAX [Suspect]
     Active Substance: DEGARELIX
     Dosage: 80 MG, EVERY 4 WEEKS
     Route: 058
     Dates: start: 20150702, end: 20151119
  3. CONIEL [Concomitant]
     Active Substance: BENIDIPINE HYDROCHLORIDE
     Dosage: UNK
     Dates: start: 20110124
  4. OLMETEC [Concomitant]
     Active Substance: OLMESARTAN MEDOXOMIL
     Dosage: 20 MG, UNK
     Dates: start: 20110124
  5. GONAX [Suspect]
     Active Substance: DEGARELIX
     Indication: PROSTATE CANCER
     Dosage: 240 MG, ONCE/SINGLE
     Route: 058
     Dates: start: 20150604, end: 20150604
  6. FERRUM                             /00023502/ [Concomitant]
     Dosage: UNK
     Dates: start: 20121208

REACTIONS (8)
  - Fatigue [Recovered/Resolved]
  - Injection site induration [Recovered/Resolved]
  - Barrett^s oesophagus [Unknown]
  - Ileus [Recovered/Resolved]
  - Haematochezia [Recovered/Resolved]
  - Loss of consciousness [Recovered/Resolved]
  - Injection site pain [Recovered/Resolved]
  - Malaise [Recovered/Resolved]

NARRATIVE: CASE EVENT DATE: 20150702
